FAERS Safety Report 9743273 (Version 1)
Quarter: 2013Q4

REPORT INFORMATION
  Report Type: Spontaneous
  Country: US (occurrence: US)
  Receive Date: 20131210
  Receipt Date: 20131210
  Transmission Date: 20140711
  Serious: No
  Sender: FDA-Public Use
  Company Number: US-GILEAD-2009-0025602

PATIENT
  Sex: Female
  Weight: 85.73 kg

DRUGS (9)
  1. LETAIRIS [Suspect]
     Indication: PULMONARY ARTERIAL HYPERTENSION
     Route: 048
     Dates: start: 20090508, end: 20091119
  2. DIGOXIN [Concomitant]
  3. COZAAR [Concomitant]
  4. RYTHMOL SR [Concomitant]
  5. LASIX [Concomitant]
  6. METOLAZONE [Concomitant]
  7. COUMADIN [Concomitant]
  8. PRANDIN [Concomitant]
  9. LEVOTHROID [Concomitant]

REACTIONS (1)
  - Unevaluable event [Unknown]
